FAERS Safety Report 21291712 (Version 8)
Quarter: 2024Q3

REPORT INFORMATION
  Report Type: Report from Study
  Country: US (occurrence: US)
  Receive Date: 20220903
  Receipt Date: 20240910
  Transmission Date: 20241017
  Serious: No
  Sender: ABBVIE
  Company Number: US-ABBVIE-22K-163-4525961-00

PATIENT
  Sex: Female

DRUGS (3)
  1. HUMIRA [Suspect]
     Active Substance: ADALIMUMAB
     Indication: Rheumatoid arthritis
     Dosage: FORM STRENGTH: 40 MG, CITRATE FREE
     Route: 058
  2. HUMIRA [Suspect]
     Active Substance: ADALIMUMAB
     Dosage: FORM STRENGTH: 40 MG, CITRATE FREE
     Route: 058
     Dates: start: 20230521
  3. HUMIRA [Suspect]
     Active Substance: ADALIMUMAB
     Dosage: FORM STRENGTH: 40 MG, CITRATE FREE
     Route: 058

REACTIONS (7)
  - Neck mass [Unknown]
  - Arthralgia [Recovering/Resolving]
  - Hypoaesthesia [Not Recovered/Not Resolved]
  - Somnolence [Not Recovered/Not Resolved]
  - Myalgia [Unknown]
  - Pain in extremity [Recovering/Resolving]
  - Ear pain [Unknown]
